FAERS Safety Report 17037640 (Version 2)
Quarter: 2019Q4

REPORT INFORMATION
  Report Type: Report from Study
  Country: BE (occurrence: BE)
  Receive Date: 20191115
  Receipt Date: 20191205
  Transmission Date: 20200122
  Serious: Yes (Other)
  Sender: FDA-Public Use
  Company Number: PHHY2015BE003849

PATIENT
  Age: 56 Year
  Sex: Female

DRUGS (1)
  1. GILENYA [Suspect]
     Active Substance: FINGOLIMOD HYDROCHLORIDE
     Indication: MULTIPLE SCLEROSIS
     Dosage: QD
     Route: 048
     Dates: start: 20130831

REACTIONS (12)
  - Eye infection [Unknown]
  - Reflux gastritis [Unknown]
  - Fatigue [Unknown]
  - Gastric disorder [Unknown]
  - Gastroenteritis [Unknown]
  - Hypothyroidism [Unknown]
  - Influenza like illness [Unknown]
  - Influenza [Unknown]
  - Salivary gland enlargement [Unknown]
  - Oral infection [Unknown]
  - Influenza like illness [Recovered/Resolved]
  - Nasopharyngitis [Unknown]

NARRATIVE: CASE EVENT DATE: 20131201
